FAERS Safety Report 5882143-9 (Version None)
Quarter: 2008Q3

REPORT INFORMATION
  Report Type: 
  Country: None (occurrence: None)
  Receive Date: 20080912
  Receipt Date: 20080723
  Transmission Date: 20090109
  Serious: No
  Sender: FDA-Public Use
  Company Number: US-ABBOTT-08P-163-0465709-00

PATIENT
  Sex: Female
  Weight: 95.34 kg

DRUGS (9)
  1. HUMIRA [Suspect]
     Indication: RHEUMATOID ARTHRITIS
     Route: 058
     Dates: start: 20040101, end: 20080506
  2. HUMIRA [Suspect]
     Route: 058
     Dates: start: 20080719
  3. MELOXICAM [Concomitant]
     Indication: PAIN
     Route: 048
     Dates: start: 20040101
  4. PREGABALIN [Concomitant]
     Indication: PAIN
     Route: 048
     Dates: start: 20050101
  5. CYCLOBENZAPRINE HCL [Concomitant]
     Indication: PAIN
     Route: 048
     Dates: start: 20000101
  6. LANSOPRAZOLE [Concomitant]
     Indication: GASTROOESOPHAGEAL REFLUX DISEASE
     Route: 048
     Dates: start: 20060101
  7. OXYMORPHONE HCL [Concomitant]
     Indication: PAIN
     Route: 048
     Dates: start: 20080201
  8. OXYMORPHONE HCL [Concomitant]
     Indication: BREAKTHROUGH PAIN
     Route: 048
     Dates: start: 20080201
  9. AMITRIPTYLINE HCL [Concomitant]
     Indication: DEPRESSION
     Route: 048
     Dates: start: 19880101

REACTIONS (6)
  - BACK INJURY [None]
  - FOLLICULITIS [None]
  - FURUNCLE [None]
  - MUSCULOSKELETAL STIFFNESS [None]
  - PAIN [None]
  - RASH ERYTHEMATOUS [None]
